FAERS Safety Report 9909058 (Version 1)
Quarter: 2014Q1

REPORT INFORMATION
  Report Type: Spontaneous
  Country: US (occurrence: None)
  Receive Date: 20140212
  Receipt Date: 20140212
  Transmission Date: 20141002
  Serious: Yes (Hospitalization)
  Sender: FDA-Public Use
  Company Number: USW201402-000022

PATIENT
  Age: 76 Year
  Sex: Male

DRUGS (1)
  1. APOKYN [Suspect]
     Indication: PARKINSON^S DISEASE
     Dosage: 0.3ML, ONE TIME, SITE ABDOMEN
     Route: 058
     Dates: start: 20130911

REACTIONS (3)
  - Transient ischaemic attack [None]
  - Speech disorder [None]
  - Loss of consciousness [None]
